FAERS Safety Report 7809108-1 (Version None)
Quarter: 2011Q4

REPORT INFORMATION
  Report Type: 
  Country: None (occurrence: None)
  Receive Date: 20111006
  Receipt Date: 20110920
  Transmission Date: 20120403
  Serious: Yes (Hospitalization)
  Sender: FDA-Public Use
  Company Number: 2011MA014193

PATIENT
  Age: 70 Year
  Sex: Female

DRUGS (2)
  1. PAREGORIC LIQUID USP (ALPHARMA) (PAREGORIC) [Suspect]
     Indication: PAIN
     Dosage: 10 MG; UNK;UNK
  2. NAPROXEN [Suspect]
     Indication: PAIN
     Dosage: ;UNK;UNK

REACTIONS (5)
  - NEUTROPHILIA [None]
  - ACUTE GENERALISED EXANTHEMATOUS PUSTULOSIS [None]
  - TOXIC EPIDERMAL NECROLYSIS [None]
  - SKIN OEDEMA [None]
  - LEUKOCYTOSIS [None]
